FAERS Safety Report 24004830 (Version 2)
Quarter: 2024Q3

REPORT INFORMATION
  Report Type: Spontaneous
  Country: DE (occurrence: DE)
  Receive Date: 20240624
  Receipt Date: 20240729
  Transmission Date: 20241016
  Serious: Yes (Death, Hospitalization)
  Sender: EMD SERONO INC
  Company Number: DE-Merck Healthcare KGaA-2024033992

PATIENT
  Age: 78 Year
  Sex: Male

DRUGS (4)
  1. BAVENCIO [Suspect]
     Active Substance: AVELUMAB
     Indication: Transitional cell carcinoma metastatic
     Route: 042
     Dates: start: 20230629
  2. ALLOPURINOL [Concomitant]
     Active Substance: ALLOPURINOL
     Indication: Product used for unknown indication
  3. LERCANIDIPINE [Concomitant]
     Active Substance: LERCANIDIPINE
     Indication: Product used for unknown indication
  4. TAMSULOSIN [Concomitant]
     Active Substance: TAMSULOSIN
     Indication: Product used for unknown indication

REACTIONS (2)
  - Pulmonary embolism [Fatal]
  - Anaphylactic shock [Recovered/Resolved]

NARRATIVE: CASE EVENT DATE: 20230629
